FAERS Safety Report 6997712-2 (Version None)
Quarter: 2010Q3

REPORT INFORMATION
  Report Type: 
  Country: None (occurrence: None)
  Receive Date: 20100918
  Receipt Date: 20091202
  Transmission Date: 20110219
  Serious: No
  Sender: FDA-Public Use
  Company Number: US-WYE-H12708509

PATIENT
  Age: 49 Year
  Sex: Male
  Weight: 95.34 kg

DRUGS (1)
  1. ADVIL PM [Suspect]
     Dosage: 2 CAPLETS X 1
     Route: 048

REACTIONS (2)
  - DRUG INEFFECTIVE [None]
  - MUSCLE TWITCHING [None]
